FAERS Safety Report 6886034-6 (Version None)
Quarter: 2010Q3

REPORT INFORMATION
  Report Type: 
  Country: None (occurrence: None)
  Receive Date: 20100729
  Receipt Date: 20080628
  Transmission Date: 20110219
  Serious: Yes (Hospitalization, Other)
  Sender: FDA-Public Use
  Company Number: US-PFIZER INC-2008034352

PATIENT
  Age: 58 Year
  Sex: Female
  Weight: 68.9 kg

DRUGS (2)
  1. CELEBREX [Suspect]
     Indication: RIB FRACTURE
     Route: 048
     Dates: start: 20080407, end: 20080407
  2. CELEBREX [Suspect]
     Indication: MUSCLE STRAIN

REACTIONS (3)
  - HYPERSENSITIVITY [None]
  - PRESYNCOPE [None]
  - PRURITUS [None]
